FAERS Safety Report 9034652 (Version 1)
Quarter: 2013Q1

REPORT INFORMATION
  Report Type: Spontaneous
  Country: GB (occurrence: None)
  Receive Date: 20130115
  Receipt Date: 20130115
  Transmission Date: 20140127
  Serious: Yes (Hospitalization)
  Sender: FDA-Public Use
  Company Number: 2012AP004482

PATIENT
  Age: 92 Year
  Sex: Female

DRUGS (4)
  1. OMEPRAZOLE  (OMEPRAZOLE) [Suspect]
     Indication: PRODUCT USED FOR UNKNOWN INDICATION
     Dosage: UNKNOWN
  2. AMOXICILLIN  (AMOXICILLIN) [Suspect]
     Indication: PRODUCT USED FOR UNKNOWN INDICATION
     Dosage: 500  MG; UNKNOWN;  PO;  TID?10JUN2010  :  17JUN2010  7 DAY
     Route: 048
     Dates: start: 20100610, end: 20100617
  3. CIPROFLOXACIN  (CIPROFLOXACIN) [Suspect]
     Indication: MORAXELLA INFECTION
     Route: 048
     Dates: start: 20110505, end: 20110510
  4. AMOXICILLIN  AND  CLAVULANATE  POTASSIUM [Suspect]
     Indication: PEPTIC ULCER
     Dosage: 1.2  G;  UNKNOWN;  IV;  TID?04MAY2011  :  04MAY2011
     Route: 042
     Dates: start: 20110504, end: 20110504

REACTIONS (13)
  - Abdominal tenderness [None]
  - Clostridium difficile infection [None]
  - C-reactive protein increased [None]
  - Diarrhoea [None]
  - Abdominal distension [None]
  - Pyrexia [None]
  - Inflammatory marker increased [None]
  - Moraxella test positive [None]
  - Neutrophilia [None]
  - Norovirus test positive [None]
  - Pneumonia [None]
  - Vomiting [None]
  - Productive cough [None]
